FAERS Safety Report 12846976 (Version 2)
Quarter: 2016Q4

REPORT INFORMATION
  Report Type: Spontaneous
  Country: US (occurrence: US)
  Receive Date: 20161014
  Receipt Date: 20161026
  Transmission Date: 20170207
  Serious: No
  Sender: FDA-Public Use
  Company Number: US-JNJFOC-20161006920

PATIENT
  Age: 62 Year
  Sex: Female
  Weight: 72.12 kg

DRUGS (2)
  1. ZYRTEC [Suspect]
     Active Substance: CETIRIZINE HYDROCHLORIDE
     Route: 048
  2. ZYRTEC [Suspect]
     Active Substance: CETIRIZINE HYDROCHLORIDE
     Indication: SEASONAL ALLERGY
     Dosage: NIGHTLY; FOR ABOUT 6-7MONTHS
     Route: 048
     Dates: end: 201609

REACTIONS (4)
  - Migraine [Recovering/Resolving]
  - Headache [Recovering/Resolving]
  - Withdrawal syndrome [Recovering/Resolving]
  - Pruritus [Recovering/Resolving]
